FAERS Safety Report 8997272 (Version 1)
Quarter: 2013Q1

REPORT INFORMATION
  Report Type: Report from Study
  Country: CA (occurrence: CA)
  Receive Date: 20130104
  Receipt Date: 20130104
  Transmission Date: 20140127
  Serious: Yes (Other)
  Sender: FDA-Public Use
  Company Number: CA-JNJFOC-20121213515

PATIENT
  Sex: Female
  Weight: 72 kg

DRUGS (3)
  1. REMICADE [Suspect]
     Indication: VASCULITIS
     Route: 042
  2. UNKNOWN MEDICATION [Concomitant]
     Indication: CONVULSION
     Route: 065
  3. CELLCEPT [Concomitant]
     Route: 065

REACTIONS (1)
  - Cat scratch disease [Unknown]
